FAERS Safety Report 11993282 (Version 3)
Quarter: 2016Q1

REPORT INFORMATION
  Report Type: Report from Study
  Country: DE (occurrence: DE)
  Receive Date: 20160203
  Receipt Date: 20160325
  Transmission Date: 20160526
  Serious: Yes (Hospitalization)
  Sender: FDA-Public Use
  Company Number: DE-ROCHE-1705148

PATIENT
  Age: 79 Year
  Sex: Female
  Weight: 71 kg

DRUGS (6)
  1. RANIBIZUMAB [Suspect]
     Active Substance: RANIBIZUMAB
     Dosage: LAST DOSE PRIOR TO SAE
     Route: 050
     Dates: start: 20160204
  2. RANIBIZUMAB [Suspect]
     Active Substance: RANIBIZUMAB
     Dosage: LAST DOSE PRIOR TO SAE
     Route: 050
     Dates: start: 20160107
  3. METOHEXAL [Concomitant]
     Active Substance: METOPROLOL SUCCINATE
  4. RANIBIZUMAB [Suspect]
     Active Substance: RANIBIZUMAB
     Indication: NEOVASCULAR AGE-RELATED MACULAR DEGENERATION
     Dosage: UNSPECIFIED EYE
     Route: 050
     Dates: start: 20151106
  5. ASPIRIN. [Concomitant]
     Active Substance: ASPIRIN
     Dosage: 100
     Route: 065
  6. EXFORGE HCT [Concomitant]
     Active Substance: AMLODIPINE BESYLATE\HYDROCHLOROTHIAZIDE\VALSARTAN

REACTIONS (1)
  - Atrial flutter [Recovered/Resolved with Sequelae]

NARRATIVE: CASE EVENT DATE: 20160108
